FAERS Safety Report 5291860-3 (Version None)
Quarter: 2007Q2

REPORT INFORMATION
  Report Type: 
  Country: None (occurrence: None)
  Receive Date: 20070403
  Receipt Date: 20070328
  Transmission Date: 20071010
  Serious: Yes (Other)
  Sender: FDA-Public Use
  Company Number: 238719

PATIENT
  Age: 85 Year
  Sex: Male

DRUGS (2)
  1. AVASTIN [Suspect]
     Dosage: Q4W, INTRAVITREAL
     Dates: start: 20060101
  2. LUCENTIS [Suspect]
     Dosage: Q4W, INTRAVITREAL
     Dates: start: 20061201

REACTIONS (2)
  - EYE HAEMORRHAGE [None]
  - VISUAL DISTURBANCE [None]
